FAERS Safety Report 5275038-5 (Version None)
Quarter: 2007Q1

REPORT INFORMATION
  Report Type: 
  Country: None (occurrence: None)
  Receive Date: 20070326
  Receipt Date: 20070313
  Transmission Date: 20070707
  Serious: Yes (Hospitalization, Other)
  Sender: FDA-Public Use
  Company Number: GB-JNJFOC-20070303129

PATIENT
  Sex: Female
  Weight: 112 kg

DRUGS (13)
  1. INFLIXIMAB [Suspect]
     Route: 042
  2. INFLIXIMAB [Suspect]
     Route: 042
  3. INFLIXIMAB [Suspect]
     Indication: ANKYLOSING SPONDYLITIS
     Route: 042
  4. CODEINE PHOSPHATE [Concomitant]
  5. FLUOXETINE [Concomitant]
  6. FRUSEMIDE [Concomitant]
  7. FUCIDINE CAP [Concomitant]
  8. LANSAPRAZOLE [Concomitant]
  9. LISINOPRIL [Concomitant]
  10. LORATADINE [Concomitant]
  11. MELOXICAM [Concomitant]
  12. ACETAMINOPHEN [Concomitant]
  13. QUININE SULFATE [Concomitant]

REACTIONS (3)
  - ABDOMINAL DISTENSION [None]
  - LYMPHOEDEMA [None]
  - OEDEMA PERIPHERAL [None]
